FAERS Safety Report 9453049 (Version 1)
Quarter: 2013Q3

REPORT INFORMATION
  Report Type: Spontaneous
  Country: US (occurrence: US)
  Receive Date: 20130812
  Receipt Date: 20130812
  Transmission Date: 20140515
  Serious: No
  Sender: FDA-Public Use
  Company Number: US-TEVA-424338USA

PATIENT
  Sex: Female
  Weight: 68.1 kg

DRUGS (8)
  1. NUVIGIL [Suspect]
     Indication: HYPERSOMNIA
     Dates: start: 20130724
  2. PROVIGIL [Suspect]
  3. LISINOPRIL [Concomitant]
     Indication: PROPHYLAXIS
  4. METFORMIN [Concomitant]
     Indication: DIABETES MELLITUS
  5. HYDROCODONE [Concomitant]
     Indication: PAIN
  6. ZOLOFT [Concomitant]
     Indication: DEPRESSION
  7. CYMBALTA [Concomitant]
     Indication: PAIN
  8. SYMBICORT [Concomitant]
     Indication: LUNG DISORDER

REACTIONS (11)
  - Anxiety [Unknown]
  - Decreased appetite [Unknown]
  - Back pain [Unknown]
  - Pain [Unknown]
  - Anger [Unknown]
  - Nervousness [Unknown]
  - Blood pressure increased [Unknown]
  - Fatigue [Unknown]
  - Energy increased [Unknown]
  - Therapeutic response unexpected [Unknown]
  - Off label use [Unknown]
